FAERS Safety Report 7659160-1 (Version None)
Quarter: 2011Q3

REPORT INFORMATION
  Report Type: 
  Country: None (occurrence: None)
  Receive Date: 20110805
  Receipt Date: 20110801
  Transmission Date: 20111222
  Serious: Yes (Other)
  Sender: FDA-Public Use
  Company Number: GB-GLAXOSMITHKLINE-B0736528A

PATIENT
  Age: 60 Year
  Sex: Female

DRUGS (4)
  1. PRAVASTATIN [Concomitant]
  2. LEVOTHYROXINE SODIUM [Concomitant]
  3. LANSOPRAZOLE [Concomitant]
  4. PAROXETINE HCL [Suspect]
     Indication: PRODUCT USED FOR UNKNOWN INDICATION
     Dosage: 20MG PER DAY
     Route: 048

REACTIONS (9)
  - SPEECH DISORDER [None]
  - DISTURBANCE IN ATTENTION [None]
  - PAIN IN EXTREMITY [None]
  - FEELING ABNORMAL [None]
  - DYSLEXIA [None]
  - COORDINATION ABNORMAL [None]
  - DISSOCIATION [None]
  - RESTLESS LEGS SYNDROME [None]
  - VISION BLURRED [None]
